FAERS Safety Report 5122839-X (Version None)
Quarter: 2006Q4

REPORT INFORMATION
  Report Type: 
  Country: None (occurrence: None)
  Receive Date: 20061004
  Receipt Date: 20061004
  Transmission Date: 20070319
  Serious: Yes (Hospitalization)
  Sender: FDA-Public Use
  Company Number: None

PATIENT
  Age: 70 Year
  Sex: Male
  Weight: 70.3 kg

DRUGS (3)
  1. ACYCLOVIR [Suspect]
     Indication: HERPES VIRUS INFECTION
     Dosage: 2 WKS PRIOR TO ADMIT
  2. BACITRACIN [Concomitant]
  3. BENADRYL [Concomitant]

REACTIONS (2)
  - ERYTHEMA MULTIFORME [None]
  - STEVENS-JOHNSON SYNDROME [None]
